FAERS Safety Report 5150874-4 (Version None)
Quarter: 2006Q4

REPORT INFORMATION
  Report Type: 
  Country: None (occurrence: None)
  Receive Date: 20061108
  Receipt Date: 20061026
  Transmission Date: 20070319
  Serious: Yes (Other)
  Sender: FDA-Public Use
  Company Number: 2006118027

PATIENT
  Age: 83 Year
  Sex: Female
  Weight: 49 kg

DRUGS (5)
  1. NORVASC [Suspect]
     Indication: HYPERTENSION
     Dosage: 5 MG (5 MG, FREQUENCY: QD),ORAL
     Route: 048
     Dates: start: 20060926, end: 20061003
  2. BLACK VINEGAR (ALL OTHER NON-THERAPEUTIC PRODUCTS) [Suspect]
     Dosage: ORAL
     Route: 048
  3. AZELNIDIPINE (AZELNIDIPINE) [Concomitant]
  4. SENNA (SENNA) [Concomitant]
  5. BUFFERIN (ACETYLSALICYLIC ACID, ALUNINIUM GLYCINATE, MAGNESIUM CARBONA [Concomitant]

REACTIONS (8)
  - ASTHENIA [None]
  - DYSSTASIA [None]
  - FEELING ABNORMAL [None]
  - FOOD INTERACTION [None]
  - HOT FLUSH [None]
  - HYPERTENSION [None]
  - PALPITATIONS [None]
  - PSEUDOALDOSTERONISM [None]
